FAERS Safety Report 23230031 (Version 1)
Quarter: 2023Q4

REPORT INFORMATION
  Report Type: Spontaneous
  Country: MY (occurrence: MY)
  Receive Date: 20231127
  Receipt Date: 20231127
  Transmission Date: 20240110
  Serious: Yes (Life-Threatening, Hospitalization, Other)
  Sender: FDA-Public Use
  Company Number: MY-Merck Healthcare KGaA-2023489612

PATIENT
  Age: 40 Year
  Sex: Male

DRUGS (1)
  1. METFORMIN HYDROCHLORIDE [Suspect]
     Active Substance: METFORMIN HYDROCHLORIDE
     Indication: Type 2 diabetes mellitus

REACTIONS (7)
  - Metabolic acidosis [Unknown]
  - Hypovolaemic shock [Unknown]
  - Gastroenteritis [Unknown]
  - Acute kidney injury [Unknown]
  - Optic ischaemic neuropathy [Unknown]
  - Diarrhoea [Recovered/Resolved]
  - Weight decreased [Unknown]
